FAERS Safety Report 5068814-5 (Version None)
Quarter: 2006Q3

REPORT INFORMATION
  Report Type: 
  Country: None (occurrence: None)
  Receive Date: 20060802
  Receipt Date: 20060412
  Transmission Date: 20061208
  Serious: No
  Sender: FDA-Public Use
  Company Number: US-BRISTOL-MYERS SQUIBB COMPANY-13344627

PATIENT
  Age: 85 Year
  Sex: Female
  Weight: 55 kg

DRUGS (6)
  1. COUMADIN [Suspect]
     Indication: ATRIAL FIBRILLATION
     Dosage: DOSE:  2MG/DAY FOR THREE DAYS AND 4MG/DAY FOR FOUR DAYS.
  2. XALATAN [Concomitant]
  3. ATENOLOL [Concomitant]
  4. TIMOPTIC-XE [Concomitant]
  5. MIRALAX [Concomitant]
  6. ACTONEL [Concomitant]

REACTIONS (1)
  - HAEMATOCHEZIA [None]
